FAERS Safety Report 5722175-4 (Version None)
Quarter: 2008Q2

REPORT INFORMATION
  Report Type: 
  Country: None (occurrence: None)
  Receive Date: 20080429
  Receipt Date: 20070605
  Transmission Date: 20081010
  Serious: No
  Sender: FDA-Public Use
  Company Number: US-ASTRAZENECA-2007UW13540

PATIENT
  Age: 63 Year
  Sex: Male
  Weight: 77.1 kg

DRUGS (2)
  1. NEXIUM [Suspect]
     Indication: GASTROOESOPHAGEAL REFLUX DISEASE
     Route: 048
     Dates: start: 20070601
  2. LISINOPRIL [Concomitant]
     Route: 048

REACTIONS (2)
  - ABDOMINAL PAIN [None]
  - FAECES DISCOLOURED [None]
